FAERS Safety Report 23409718 (Version 3)
Quarter: 2024Q1

REPORT INFORMATION
  Report Type: Spontaneous
  Country: IR (occurrence: IR)
  Receive Date: 20240117
  Receipt Date: 20240126
  Transmission Date: 20240409
  Serious: Yes (Life-Threatening, Hospitalization, Other)
  Sender: FDA-Public Use
  Company Number: IR-MLMSERVICE-20240105-4757061-1

PATIENT
  Age: 39 Year
  Sex: Male
  Weight: 100 kg

DRUGS (8)
  1. METHYLPREDNISOLONE SODIUM SUCCINATE [Suspect]
     Active Substance: METHYLPREDNISOLONE SODIUM SUCCINATE
     Indication: COVID-19
     Dosage: 250 MG, 1X/DAY
     Route: 042
     Dates: start: 202010, end: 202010
  2. PREDNISOLONE [Suspect]
     Active Substance: PREDNISOLONE
     Indication: COVID-19
     Dosage: CUMULATIVE DOSE OF PREDNISOLONE ALONE WAS 681 MG
     Route: 048
     Dates: start: 202010, end: 202012
  3. DEXAMETHASONE [Suspect]
     Active Substance: DEXAMETHASONE
     Indication: COVID-19
     Dosage: 16 MG, DAILY
     Dates: start: 2020, end: 2020
  4. RIVAROXABAN [Concomitant]
     Active Substance: RIVAROXABAN
     Indication: COVID-19
     Dosage: 10 MG, DAILY
     Dates: start: 202010, end: 202011
  5. COVID-19 VACCINE [Concomitant]
     Indication: COVID-19 immunisation
     Dosage: DOSE 1, SINGLE
  6. COVID-19 VACCINE [Concomitant]
     Dosage: DOSE 2, SINGLE
  7. COVID-19 VACCINE [Concomitant]
     Dosage: DOSE 3 (BOOSTER), SINGLE
  8. COVID-19 VACCINE [Concomitant]
     Dosage: DOSE 4 (BOOSTER), SINGLE
     Dates: start: 202205, end: 202205

REACTIONS (2)
  - Osteonecrosis [Unknown]
  - Off label use [Unknown]

NARRATIVE: CASE EVENT DATE: 20201001
